FAERS Safety Report 22011854 (Version 5)
Quarter: 2023Q2

REPORT INFORMATION
  Report Type: Spontaneous
  Country: US (occurrence: US)
  Receive Date: 20230220
  Receipt Date: 20230405
  Transmission Date: 20230722
  Serious: No
  Sender: FDA-Public Use
  Company Number: US-PFIZER INC-PV202300030826

PATIENT
  Age: 76 Year
  Sex: Male

DRUGS (4)
  1. INLYTA [Suspect]
     Active Substance: AXITINIB
     Dosage: UNK
     Dates: start: 20230207
  2. INLYTA [Suspect]
     Active Substance: AXITINIB
     Dosage: 5 MG, 2X/DAY
  3. INLYTA [Suspect]
     Active Substance: AXITINIB
     Dosage: 3 MG, DAILY (THREE 1MG PILLS/DAY)
  4. INLYTA [Suspect]
     Active Substance: AXITINIB
     Dosage: 2 MG, 2X/DAY [FOUR 1 MG PILLS A DAY (2 PILLS AM, 2 PILLS PM)]

REACTIONS (15)
  - Fatigue [Unknown]
  - Dysphonia [Unknown]
  - Rash [Recovering/Resolving]
  - Constipation [Unknown]
  - Dyspepsia [Unknown]
  - Oral discomfort [Unknown]
  - Tongue discomfort [Unknown]
  - Feeding disorder [Unknown]
  - Arthralgia [Recovering/Resolving]
  - Pain [Unknown]
  - Stomatitis [Recovering/Resolving]
  - Insomnia [Unknown]
  - Epistaxis [Recovering/Resolving]
  - Off label use [Unknown]
  - Product use issue [Unknown]

NARRATIVE: CASE EVENT DATE: 20230101
